FAERS Safety Report 5960688-0 (Version None)
Quarter: 2008Q4

REPORT INFORMATION
  Report Type: 
  Country: None (occurrence: None)
  Receive Date: 20081120
  Receipt Date: 20081110
  Transmission Date: 20090506
  Serious: Yes (Other)
  Sender: FDA-Public Use
  Company Number: ES-GENENTECH-271320

PATIENT
  Age: 46 Year
  Sex: Female

DRUGS (6)
  1. XOLAIR [Suspect]
     Indication: HYPERSENSITIVITY
     Dosage: 300 MG, Q4W
     Route: 058
     Dates: start: 20061001
  2. SINGULAIR [Concomitant]
     Indication: DRUG USE FOR UNKNOWN INDICATION
  3. PLUSVENT ACCUHALER [Concomitant]
     Indication: DRUG USE FOR UNKNOWN INDICATION
  4. METFORMIN HCL [Concomitant]
     Indication: DRUG USE FOR UNKNOWN INDICATION
  5. SIMVASTATIN [Concomitant]
     Indication: DRUG USE FOR UNKNOWN INDICATION
  6. IRON SUCCINYL-PROTEIN COMPLEX [Concomitant]
     Indication: DRUG USE FOR UNKNOWN INDICATION

REACTIONS (1)
  - ANAEMIA [None]
